FAERS Safety Report 25773973 (Version 2)
Quarter: 2025Q3

REPORT INFORMATION
  Report Type: Spontaneous
  Country: US (occurrence: US)
  Receive Date: 20250908
  Receipt Date: 20250912
  Transmission Date: 20251020
  Serious: No
  Sender: BRISTOL-MYERS SQUIBB COMPANY
  Company Number: US-BRISTOL-MYERS SQUIBB COMPANY-2025-123759

PATIENT

DRUGS (2)
  1. REBLOZYL [Suspect]
     Active Substance: LUSPATERCEPT-AAMT
     Indication: Product used for unknown indication
  2. REBLOZYL [Suspect]
     Active Substance: LUSPATERCEPT-AAMT

REACTIONS (1)
  - Product preparation error [Unknown]
